FAERS Safety Report 5250923-9 (Version None)
Quarter: 2007Q1

REPORT INFORMATION
  Report Type: 
  Country: None (occurrence: None)
  Receive Date: 20070228
  Receipt Date: 20060727
  Transmission Date: 20070707
  Serious: No
  Sender: FDA-Public Use
  Company Number: US-GLAXOSMITHKLINE-A0613787A

PATIENT
  Age: 14 Year
  Sex: Male

DRUGS (3)
  1. LAMICTAL [Suspect]
     Indication: PARTIAL SEIZURES
     Dosage: 450MG PER DAY
     Route: 048
  2. KEPPRA [Concomitant]
  3. CLARITIN [Concomitant]

REACTIONS (1)
  - DRUG INEFFECTIVE [None]
